FAERS Safety Report 6465480-9 (Version None)
Quarter: 2009Q4

REPORT INFORMATION
  Report Type: 
  Country: None (occurrence: None)
  Receive Date: 20091124
  Receipt Date: 20091119
  Transmission Date: 20100525
  Serious: Yes (Death, Life-Threatening, Hospitalization)
  Sender: FDA-Public Use
  Company Number: 2009SP037251

PATIENT
  Age: 79 Year
  Sex: Female
  Weight: 63 kg

DRUGS (9)
  1. TEMODAL [Suspect]
     Indication: BRAIN NEOPLASM
     Dosage: 150 MG/M2; QD; PO, 200 MG/M2; QD; PO
     Route: 048
     Dates: start: 20070109, end: 20070113
  2. TEMODAL [Suspect]
     Indication: BRAIN NEOPLASM
     Dosage: 150 MG/M2; QD; PO, 200 MG/M2; QD; PO
     Route: 048
     Dates: start: 20070206, end: 20070210
  3. TEMODAL [Suspect]
     Indication: BRAIN NEOPLASM
     Dosage: 150 MG/M2; QD; PO, 200 MG/M2; QD; PO
     Route: 048
     Dates: start: 20070313, end: 20070317
  4. TEMODAL [Suspect]
     Indication: BRAIN NEOPLASM
     Dosage: 150 MG/M2; QD; PO, 200 MG/M2; QD; PO
     Route: 048
     Dates: start: 20070410, end: 20070414
  5. TEMODAL [Suspect]
     Indication: BRAIN NEOPLASM
     Dosage: 150 MG/M2; QD; PO, 200 MG/M2; QD; PO
     Route: 048
     Dates: start: 20070508, end: 20070512
  6. TEMODAL [Suspect]
     Indication: BRAIN NEOPLASM
     Dosage: 150 MG/M2; QD; PO, 200 MG/M2; QD; PO
     Route: 048
     Dates: start: 20070717, end: 20070721
  7. THYRADIN S [Concomitant]
  8. PREDONINE [Concomitant]
  9. EXCEGRAN [Concomitant]

REACTIONS (3)
  - DISEASE PROGRESSION [None]
  - FEMORAL NECK FRACTURE [None]
  - THROMBOSIS [None]
